FAERS Safety Report 6700419-X (Version None)
Quarter: 2010Q2

REPORT INFORMATION
  Report Type: 
  Country: None (occurrence: None)
  Receive Date: 20100426
  Receipt Date: 20100218
  Transmission Date: 20101027
  Serious: Yes (Hospitalization)
  Sender: FDA-Public Use
  Company Number: 310011M10FRA

PATIENT
  Age: 22 Year
  Sex: Female

DRUGS (3)
  1. GONAL-F [Suspect]
     Indication: ASSISTED FERTILISATION
     Dosage: 150 IU, 1 IN 1 D, SUBCUTANEOUS
     Route: 058
     Dates: start: 20090122, end: 20090131
  2. OVITRELLE (CHORIOGONADOTROPIN ALFA) [Suspect]
     Indication: ASSISTED FERTILISATION
     Dosage: 250 MCG, ONCE, SUBCUTANEOUS
     Route: 058
     Dates: start: 20090201, end: 20090201
  3. DECAPEPTYL (TRIPTORELIN ACETATE) [Suspect]
     Indication: ASSISTED FERTILISATION
     Dosage: 0.1 MG, 1 IN 1 D, SUBCUTANEOUS
     Route: 058
     Dates: start: 20081231, end: 20090131

REACTIONS (4)
  - DRUG EXPOSURE BEFORE PREGNANCY [None]
  - OVARIAN HYPERSTIMULATION SYNDROME [None]
  - OVARIAN TORSION [None]
  - PREGNANCY [None]
